FAERS Safety Report 23456581 (Version 3)
Quarter: 2025Q4

REPORT INFORMATION
  Report Type: Report from Study
  Country: GB (occurrence: GB)
  Receive Date: 20240130
  Receipt Date: 20251003
  Transmission Date: 20260118
  Serious: Yes (Hospitalization, Other)
  Sender: SANDOZ
  Company Number: GB-SANDOZ-SDZ2024GB007697

PATIENT
  Sex: Male

DRUGS (1)
  1. OMNITROPE [Suspect]
     Active Substance: SOMATROPIN
     Indication: Hypopituitarism
     Dosage: 0.30 MG, QD
     Route: 058

REACTIONS (7)
  - Decubitus ulcer [Not Recovered/Not Resolved]
  - Sepsis [Not Recovered/Not Resolved]
  - Memory impairment [Unknown]
  - Product storage error [Unknown]
  - Product communication issue [Unknown]
  - Poor quality product administered [Unknown]
  - Therapy cessation [Unknown]
